FAERS Safety Report 20469092 (Version 1)
Quarter: 2022Q1

REPORT INFORMATION
  Report Type: Spontaneous
  Country: US (occurrence: None)
  Receive Date: 20220212
  Receipt Date: 20220212
  Transmission Date: 20220423
  Serious: Yes (Other)
  Sender: FDA-Public Use
  Company Number: None

PATIENT
  Age: 63 Year
  Sex: Female
  Weight: 63.9 kg

DRUGS (2)
  1. LATUDA [Suspect]
     Active Substance: LURASIDONE HYDROCHLORIDE
     Indication: Bipolar I disorder
     Dosage: FREQUENCY : DAILY;?
     Route: 048
  2. LATUDA [Suspect]
     Active Substance: LURASIDONE HYDROCHLORIDE
     Indication: Anxiety

REACTIONS (2)
  - Weight increased [None]
  - Product communication issue [None]

NARRATIVE: CASE EVENT DATE: 20200219
